FAERS Safety Report 4811533-8 (Version None)
Quarter: 2005Q4

REPORT INFORMATION
  Report Type: 
  Country: None (occurrence: None)
  Receive Date: 20051025
  Receipt Date: 20051014
  Transmission Date: 20060501
  Serious: Yes (Death)
  Sender: FDA-Public Use
  Company Number: 2005AL004267

PATIENT
  Age: 40 Year
  Sex: Female

DRUGS (3)
  1. SERAX [Suspect]
     Dosage: PO
     Route: 048
     Dates: end: 20041231
  2. ALCOHOL [Suspect]
     Dates: start: 20041231, end: 20041231
  3. LOXAPAC [Suspect]
     Dates: end: 20041231

REACTIONS (2)
  - BLOOD ALCOHOL INCREASED [None]
  - OVERDOSE [None]
